FAERS Safety Report 21974201 (Version 4)
Quarter: 2023Q1

REPORT INFORMATION
  Report Type: Spontaneous
  Country: RU (occurrence: RU)
  Receive Date: 20230209
  Receipt Date: 20230325
  Transmission Date: 20230418
  Serious: Yes (Other)
  Sender: FDA-Public Use
  Company Number: RU-002147023-NVSC2023RU012614

PATIENT
  Age: 85 Year
  Sex: Female

DRUGS (5)
  1. BROLUCIZUMAB [Suspect]
     Active Substance: BROLUCIZUMAB
     Indication: Neovascular age-related macular degeneration
     Dosage: 6 MG
     Route: 031
     Dates: start: 20220728
  2. BROLUCIZUMAB [Suspect]
     Active Substance: BROLUCIZUMAB
     Dosage: 6 MG
     Route: 031
     Dates: start: 20221208
  3. BISOPROLOL FUMARATE [Concomitant]
     Active Substance: BISOPROLOL FUMARATE
     Indication: Product used for unknown indication
     Dosage: 2.5 MG, QD
     Route: 065
  4. LOZAP [Concomitant]
     Indication: Product used for unknown indication
     Dosage: 50 MG, BID
     Route: 065
  5. CARDIOMAGNYL [Concomitant]
     Active Substance: ASPIRIN\MAGNESIUM HYDROXIDE
     Indication: Product used for unknown indication
     Dosage: UNK, QD
     Route: 065

REACTIONS (13)
  - Vitritis [Recovering/Resolving]
  - Vitreal cells [Recovering/Resolving]
  - Retinal vascular occlusion [Recovering/Resolving]
  - Visual impairment [Recovering/Resolving]
  - Eye pain [Recovering/Resolving]
  - Choroidal neovascularisation [Recovering/Resolving]
  - Open angle glaucoma [Recovering/Resolving]
  - Retinal occlusive vasculitis [Recovering/Resolving]
  - Vision blurred [Recovering/Resolving]
  - Visual acuity reduced [Recovering/Resolving]
  - Vitreous floaters [Recovering/Resolving]
  - Herpes zoster [Unknown]
  - COVID-19 [Unknown]

NARRATIVE: CASE EVENT DATE: 20220801
